FAERS Safety Report 6291694-7 (Version None)
Quarter: 2009Q3

REPORT INFORMATION
  Report Type: 
  Country: None (occurrence: None)
  Receive Date: 20090730
  Receipt Date: 20090721
  Transmission Date: 20100115
  Serious: Yes (Other)
  Sender: FDA-Public Use
  Company Number: US-ELI_LILLY_AND_COMPANY-US200905002307

PATIENT
  Age: 80 Year
  Sex: Female

DRUGS (5)
  1. FORTEO [Suspect]
     Dates: start: 20090401
  2. AZOR [Concomitant]
  3. PREMARIN [Concomitant]
  4. AMBIEN CR [Concomitant]
  5. COREG [Concomitant]

REACTIONS (4)
  - ANXIETY [None]
  - BLOOD PRESSURE DECREASED [None]
  - FALL [None]
  - LOSS OF CONSCIOUSNESS [None]
